FAERS Safety Report 21706144 (Version 1)
Quarter: 2022Q4

REPORT INFORMATION
  Report Type: Report from Study
  Country: JP (occurrence: JP)
  Receive Date: 20221209
  Receipt Date: 20221209
  Transmission Date: 20230113
  Serious: Yes (Hospitalization, Other)
  Sender: FDA-Public Use
  Company Number: JP-ONO-2022JP032445

PATIENT
  Age: 78 Year
  Sex: Male
  Weight: 64.1 kg

DRUGS (26)
  1. AMLODIPINE [Concomitant]
     Active Substance: AMLODIPINE BESYLATE
     Indication: Hypertension
     Dosage: 5 MG
     Route: 048
     Dates: start: 20210525
  2. AMLODIPINE [Concomitant]
     Active Substance: AMLODIPINE BESYLATE
     Dosage: 5 MG
     Route: 048
     Dates: start: 20211026, end: 20211125
  3. AMLODIPINE [Concomitant]
     Active Substance: AMLODIPINE BESYLATE
     Dosage: 2.5 MG
     Route: 048
     Dates: start: 20211126
  4. MAGNESIUM OXIDE [Concomitant]
     Active Substance: MAGNESIUM OXIDE
     Indication: Constipation
     Dosage: 660 MG
     Route: 048
     Dates: start: 20210622
  5. LOXONIN PAP [Concomitant]
     Indication: Back pain
     Dosage: 100 MG
     Route: 061
     Dates: start: 20210622
  6. BELSOMRA [Concomitant]
     Active Substance: SUVOREXANT
     Indication: Insomnia
     Dosage: 15 MG
     Route: 048
     Dates: start: 20210622
  7. BELSOMRA [Concomitant]
     Active Substance: SUVOREXANT
     Dosage: 15 MG
     Route: 048
     Dates: start: 20211005
  8. KETOPROFEN PAP [Concomitant]
     Indication: Back pain
     Dosage: 120 MG
     Route: 061
     Dates: start: 20210803
  9. DEXTROMETHORPHAN HYDROBROMIDE [Concomitant]
     Active Substance: DEXTROMETHORPHAN HYDROBROMIDE
     Indication: Non-small cell lung cancer
     Dosage: 45 MG
     Route: 048
     Dates: start: 20210430
  10. DEXTROMETHORPHAN HYDROBROMIDE [Concomitant]
     Active Substance: DEXTROMETHORPHAN HYDROBROMIDE
     Dosage: 30 MG
     Route: 048
     Dates: start: 20211012, end: 20211108
  11. DEXTROMETHORPHAN HYDROBROMIDE [Concomitant]
     Active Substance: DEXTROMETHORPHAN HYDROBROMIDE
     Dosage: 15 MG
     Route: 048
     Dates: start: 20211109
  12. FEBUXOSTAT [Concomitant]
     Active Substance: FEBUXOSTAT
     Indication: Hyperuricaemia
     Dosage: 10 MG
     Route: 048
     Dates: start: 20210313
  13. SODIUM CROMOGLICATE TOWA [Concomitant]
     Indication: Seasonal allergy
     Dosage: UNK
     Route: 045
     Dates: start: 20220301
  14. GLYCOSAMINOGLYCANS [Concomitant]
     Active Substance: GLYCOSAMINOGLYCANS
     Indication: Dry skin
     Dosage: UNK
     Route: 061
     Dates: start: 20220802
  15. BETAMETHASONE BUTYRATE PROPIONATE [Concomitant]
     Active Substance: BETAMETHASONE BUTYRATE PROPIONATE
     Indication: Pemphigoid
     Dosage: UNK
     Route: 061
     Dates: start: 20220920
  16. HYDROCORTISONE BUTYRATE [Concomitant]
     Active Substance: HYDROCORTISONE BUTYRATE
     Indication: Pemphigoid
     Dosage: 1 UNK
     Route: 061
     Dates: start: 20220920
  17. BETAMETHASONE DIPROPIONATE [Concomitant]
     Active Substance: BETAMETHASONE DIPROPIONATE
     Indication: Pemphigoid
     Dosage: UNK
     Route: 061
     Dates: start: 20221025
  18. BETAMETHASONE DIPROPIONATE [Concomitant]
     Active Substance: BETAMETHASONE DIPROPIONATE
     Dosage: UNK
     Route: 061
     Dates: start: 20221108
  19. WHITE PETROLATUM [Concomitant]
     Active Substance: PETROLATUM
     Indication: Pemphigoid
     Dosage: UNK
     Route: 061
     Dates: start: 20221025
  20. Yokukansankachimpihange [Concomitant]
     Indication: Neurosis
     Dosage: 7.5 G
     Route: 048
     Dates: start: 2020, end: 20210524
  21. Yokukansankachimpihange [Concomitant]
     Dosage: 5 G
     Route: 048
     Dates: start: 20210525
  22. ALCLOMETASONE DIPROPIONATE [Concomitant]
     Active Substance: ALCLOMETASONE DIPROPIONATE
     Indication: Pemphigoid
     Dosage: 1 UNK
     Route: 061
     Dates: start: 20221022
  23. EBASTEL OD [Concomitant]
     Indication: Pemphigoid
     Dosage: 10 MG
     Route: 048
     Dates: start: 20221108
  24. MINOCYCLINE HYDROCHLORIDE [Concomitant]
     Active Substance: MINOCYCLINE HYDROCHLORIDE
     Indication: Pemphigoid
     Dosage: 200 MG
     Route: 048
     Dates: start: 20221129
  25. CODEINE PHOSPHATE [Concomitant]
     Active Substance: CODEINE PHOSPHATE
     Indication: Non-small cell lung cancer
     Dosage: 20 MG
     Route: 048
     Dates: start: 20210524
  26. AVAPRO [Concomitant]
     Active Substance: IRBESARTAN
     Indication: Hypertension
     Dosage: 100 MG
     Route: 048
     Dates: start: 20210525

REACTIONS (1)
  - Pemphigoid [Not Recovered/Not Resolved]

NARRATIVE: CASE EVENT DATE: 20221201
